FAERS Safety Report 10733946 (Version 2)
Quarter: 2015Q2

REPORT INFORMATION
  Report Type: Spontaneous
  Country: US (occurrence: None)
  Receive Date: 20150121
  Receipt Date: 20150428
  Transmission Date: 20150821
  Serious: Yes (Other)
  Sender: FDA-Public Use
  Company Number: 2015VER00021

PATIENT
  Age: 17 Year
  Sex: Male
  Weight: 54.4 kg

DRUGS (2)
  1. MYORISAN [Suspect]
     Active Substance: ISOTRETINOIN
     Indication: ACNE
     Route: 048
     Dates: start: 20141121, end: 20141125
  2. MYORISAN [Suspect]
     Active Substance: ISOTRETINOIN
     Indication: ACNE
     Route: 048
     Dates: start: 20141020, end: 20141120

REACTIONS (2)
  - Depression [None]
  - Infection [None]

NARRATIVE: CASE EVENT DATE: 201411
